FAERS Safety Report 25797810 (Version 1)
Quarter: 2025Q3

REPORT INFORMATION
  Report Type: Spontaneous
  Country: US (occurrence: US)
  Receive Date: 20250912
  Receipt Date: 20250912
  Transmission Date: 20251021
  Serious: No
  Sender: ACERUS PHARMACEUTICALS CORPORATION
  Company Number: US-ACERUSPHRM-2025-US-000050

PATIENT

DRUGS (1)
  1. NATESTO [Suspect]
     Active Substance: TESTOSTERONE
     Indication: Product used for unknown indication

REACTIONS (3)
  - Rhinorrhoea [Unknown]
  - Product dose omission issue [Unknown]
  - Unevaluable event [Unknown]
